FAERS Safety Report 23955941 (Version 6)
Quarter: 2024Q3

REPORT INFORMATION
  Report Type: Spontaneous
  Country: US (occurrence: US)
  Receive Date: 20240610
  Receipt Date: 20240828
  Transmission Date: 20241017
  Serious: No
  Sender: Haleon PLC
  Company Number: US-HALEON-2180735

PATIENT
  Age: 57 Year
  Sex: Male

DRUGS (1)
  1. ADVIL [Suspect]
     Active Substance: IBUPROFEN\IBUPROFEN SODIUM
     Indication: Headache
     Dosage: 1 TABLET ,LOT NUMBER IS RG5L EXP 08/26
     Dates: start: 20240606

REACTIONS (4)
  - Anxiety [Unknown]
  - Dizziness [Recovering/Resolving]
  - Feeling abnormal [Unknown]
  - Product complaint [Unknown]

NARRATIVE: CASE EVENT DATE: 20240606
